FAERS Safety Report 24568613 (Version 3)
Quarter: 2025Q1

REPORT INFORMATION
  Report Type: Spontaneous
  Country: BR (occurrence: BR)
  Receive Date: 20241031
  Receipt Date: 20250305
  Transmission Date: 20250409
  Serious: Yes (Hospitalization)
  Sender: BAYER HEALTHCARE PHARMACEUTICALS INC.
  Company Number: BR-BAYER-2024A151340

PATIENT
  Age: 73 Year
  Sex: Male

DRUGS (10)
  1. NEXAVAR [Suspect]
     Active Substance: SORAFENIB
     Indication: Hepatocellular carcinoma
     Dosage: 400 MG, QD
     Dates: start: 202201
  2. NEXAVAR [Suspect]
     Active Substance: SORAFENIB
     Indication: Hepatocellular carcinoma
     Dosage: 600 MG, QD
  3. NEXAVAR [Suspect]
     Active Substance: SORAFENIB
     Indication: Hepatocellular carcinoma
     Dosage: 400 MG, QD
     Dates: start: 2023
  4. CARVEDILOL [Concomitant]
     Active Substance: CARVEDILOL
     Indication: Myocardial infarction
     Dates: start: 2011
  5. SIMVASTATIN [Concomitant]
     Active Substance: SIMVASTATIN
     Indication: Blood cholesterol
  6. RIVAROXABAN [Concomitant]
     Active Substance: RIVAROXABAN
     Indication: Thrombosis prophylaxis
     Dates: start: 2023
  7. SPIRONOLACTONE [Concomitant]
     Active Substance: SPIRONOLACTONE
     Indication: Myocardial infarction
  8. MAGNE B6 [Concomitant]
     Active Substance: MAGNESIUM\PYRIDOXINE
     Indication: Vitamin supplementation
     Dates: start: 2022
  9. SERTRALINE [Concomitant]
     Active Substance: SERTRALINE HYDROCHLORIDE
     Indication: Anxiety
     Dates: start: 2023
  10. SERTRALINE [Concomitant]
     Active Substance: SERTRALINE HYDROCHLORIDE
     Indication: Anxiety
     Dosage: 50 MG, QD

REACTIONS (13)
  - Cerebral ischaemia [Recovering/Resolving]
  - Speech disorder [Recovering/Resolving]
  - Pre-existing condition improved [Recovering/Resolving]
  - Off label use [None]
  - Dysphonia [Not Recovered/Not Resolved]
  - Leg amputation [Unknown]
  - Wound [Unknown]
  - Anxiety [Not Recovered/Not Resolved]
  - Blood magnesium decreased [Unknown]
  - Cutaneous symptom [Not Recovered/Not Resolved]
  - Dry skin [Recovering/Resolving]
  - Skin disorder [Recovering/Resolving]
  - Skin discolouration [Recovering/Resolving]

NARRATIVE: CASE EVENT DATE: 20220101
